FAERS Safety Report 9444650 (Version 1)
Quarter: 2013Q3

REPORT INFORMATION
  Report Type: Spontaneous
  Country: US (occurrence: None)
  Receive Date: 20130806
  Receipt Date: 20130806
  Transmission Date: 20140515
  Serious: No
  Sender: FDA-Public Use
  Company Number: None

PATIENT
  Age: 49 None
  Sex: Female

DRUGS (9)
  1. TIZANIDINE HCI [Suspect]
     Indication: MUSCLE RELAXANT THERAPY
     Route: 048
     Dates: start: 20130720, end: 20130721
  2. SYNTHROID [Concomitant]
  3. LORATADINE [Concomitant]
  4. ENJUVIA [Concomitant]
  5. TRAMADOL [Concomitant]
  6. NAPROXEN [Concomitant]
  7. DIAZEPAM [Concomitant]
  8. TIZADINE [Concomitant]
  9. FLUTICASONE NASAL SPRAY [Concomitant]

REACTIONS (9)
  - Nausea [None]
  - Dry mouth [None]
  - Dizziness [None]
  - Lethargy [None]
  - Disorientation [None]
  - Dysgeusia [None]
  - Confusional state [None]
  - Gait disturbance [None]
  - Mental impairment [None]
